FAERS Safety Report 9927006 (Version 1)
Quarter: 2014Q1

REPORT INFORMATION
  Report Type: Spontaneous
  Country: US (occurrence: US)
  Receive Date: 20140226
  Receipt Date: 20140226
  Transmission Date: 20141002
  Serious: No
  Sender: FDA-Public Use
  Company Number: US-AMGEN-USASP2013091295

PATIENT
  Age: 50 Year
  Sex: Male
  Weight: 85.71 kg

DRUGS (5)
  1. ENBREL [Suspect]
     Indication: PRODUCT USED FOR UNKNOWN INDICATION
     Dosage: 50 MG, QWK
     Route: 058
  2. AMLODIPINE [Concomitant]
     Dosage: 10 MG, UNK
     Route: 048
  3. ETODOLAC [Concomitant]
     Dosage: 400 MG, UNK
     Route: 048
  4. FOLIC ACID [Concomitant]
     Dosage: UNK
     Route: 048
  5. VITAMIN D3 [Concomitant]
     Dosage: 1000 UNIT, UNK
     Route: 048

REACTIONS (2)
  - Sinusitis [Unknown]
  - Injection site pain [Unknown]
